FAERS Safety Report 9771922 (Version 1)
Quarter: 2013Q4

REPORT INFORMATION
  Report Type: Report from Study
  Country: AU (occurrence: AU)
  Receive Date: 20131219
  Receipt Date: 20131219
  Transmission Date: 20140711
  Serious: Yes (Hospitalization)
  Sender: FDA-Public Use
  Company Number: PHHY2013AU148504

PATIENT
  Age: 66 Year
  Sex: Female

DRUGS (1)
  1. ACLASTA [Suspect]
     Dosage: 5 MG, UNK
     Route: 042
     Dates: start: 2012

REACTIONS (4)
  - Spinal fracture [Recovering/Resolving]
  - Cardiac arrest [Recovering/Resolving]
  - Syncope [Recovering/Resolving]
  - Palpitations [Recovering/Resolving]
